FAERS Safety Report 8640253 (Version 2)
Quarter: 2013Q2

REPORT INFORMATION
  Report Type: Report from Study
  Country: US (occurrence: US)
  Receive Date: 20120628
  Receipt Date: 20130627
  Transmission Date: 20140414
  Serious: Yes (Other)
  Sender: FDA-Public Use
  Company Number: US-MYLANLABS-2012S1003239

PATIENT
  Age: 65 Year
  Sex: Female

DRUGS (9)
  1. CLOZAPINE TABLETS [Suspect]
     Route: 048
     Dates: end: 20120308
  2. COUMADIN [Concomitant]
  3. TYLENOL [Concomitant]
  4. DILTIAZEM [Concomitant]
  5. MULTIVITAMINS [Concomitant]
  6. SIMETHICONE [Concomitant]
  7. ATIVAN [Concomitant]
  8. ALBUTEROL [Concomitant]
  9. VALPROIC ACID [Concomitant]

REACTIONS (1)
  - Granulocytopenia [Not Recovered/Not Resolved]
